FAERS Safety Report 9789972 (Version 3)
Quarter: 2014Q1

REPORT INFORMATION
  Report Type: Spontaneous
  Country: SE (occurrence: SE)
  Receive Date: 20131231
  Receipt Date: 20140306
  Transmission Date: 20141002
  Serious: Yes (Hospitalization)
  Sender: FDA-Public Use
  Company Number: SE-AMGEN-SWESP2013091114

PATIENT
  Age: 91 Year
  Sex: Female

DRUGS (8)
  1. MIMPARA [Suspect]
     Indication: HYPERPARATHYROIDISM SECONDARY
     Dosage: 30 MG, UNK
     Route: 048
     Dates: start: 20120928
  2. KALEROID [Concomitant]
     Dosage: 750 MG, UNK
  3. TROMBYL [Concomitant]
     Dosage: 75 MG, UNK
  4. LEVAXIN [Concomitant]
     Dosage: 100 MUG, UNK
  5. OCULAC                             /01001802/ [Concomitant]
     Dosage: 50 MG/ML, UNK
  6. ALLOPURINOL [Concomitant]
  7. BISOPROLOL [Concomitant]
  8. TRIOBE                             /01079901/ [Concomitant]

REACTIONS (1)
  - Cardiac failure [Unknown]
